FAERS Safety Report 7307711-9 (Version None)
Quarter: 2011Q1

REPORT INFORMATION
  Report Type: 
  Country: None (occurrence: None)
  Receive Date: 20110223
  Receipt Date: 20110214
  Transmission Date: 20110831
  Serious: Yes (Other)
  Sender: FDA-Public Use
  Company Number: US-JNJFOC-20110204366

PATIENT
  Age: 16 Year
  Sex: Female

DRUGS (9)
  1. MERCAPTOPURINE [Concomitant]
     Indication: CROHN'S DISEASE
  2. A MULTIVITAMIN [Concomitant]
     Indication: NUTRITIONAL SUPPORT
  3. ERGOCALCIFEROL [Concomitant]
     Indication: NUTRITIONAL SUPPORT
  4. FOLIC ACID [Concomitant]
     Indication: NUTRITIONAL SUPPORT
  5. FIBER SUPPLEMENT [Concomitant]
     Indication: CROHN'S DISEASE
  6. INFLIXIMAB, RECOMBINANT [Suspect]
     Indication: CROHN'S DISEASE
     Route: 042
  7. PREDNISONE [Concomitant]
     Indication: CROHN'S DISEASE
  8. ASCORBIC ACID [Concomitant]
     Indication: NUTRITIONAL SUPPORT
  9. HUMIRA [Suspect]
     Indication: CROHN'S DISEASE

REACTIONS (5)
  - DISORIENTATION [None]
  - GAIT DISTURBANCE [None]
  - APHASIA [None]
  - DRUG HYPERSENSITIVITY [None]
  - LETHARGY [None]
